FAERS Safety Report 24266669 (Version 1)
Quarter: 2024Q3

REPORT INFORMATION
  Report Type: Spontaneous
  Country: US (occurrence: US)
  Receive Date: 20240830
  Receipt Date: 20240830
  Transmission Date: 20241017
  Serious: Yes (Life-Threatening, Hospitalization, Other)
  Sender: SANDOZ
  Company Number: US-SANDOZ-SDZ2024US075597

PATIENT
  Age: 67 Year
  Sex: Male
  Weight: 112 kg

DRUGS (1)
  1. VANCOMYCIN HYDROCHLORIDE [Suspect]
     Active Substance: VANCOMYCIN HYDROCHLORIDE
     Indication: Infection prophylaxis
     Dosage: 1.75 G OF INTRAVENOUS (IV) VANCOMYCIN IN 500 ML 0.9% NORMAL SALINE SOLUTION
     Route: 042

REACTIONS (6)
  - Kounis syndrome [Unknown]
  - Lactic acidosis [Unknown]
  - Respiratory acidosis [Unknown]
  - Hypokalaemia [Unknown]
  - Rib fracture [Unknown]
  - Sternal fracture [Unknown]
